FAERS Safety Report 12467757 (Version 4)
Quarter: 2016Q4

REPORT INFORMATION
  Report Type: Report from Study
  Country: US (occurrence: US)
  Receive Date: 20160615
  Receipt Date: 20161028
  Transmission Date: 20170207
  Serious: Yes (Hospitalization, Other)
  Sender: FDA-Public Use
  Company Number: US-GILEAD-2016-0217935

PATIENT
  Age: 60 Year
  Sex: Female

DRUGS (3)
  1. AMBRISENTAN [Suspect]
     Active Substance: AMBRISENTAN
     Indication: PULMONARY FIBROSIS
  2. AMBRISENTAN [Suspect]
     Active Substance: AMBRISENTAN
     Indication: CHRONIC OBSTRUCTIVE PULMONARY DISEASE
  3. AMBRISENTAN [Suspect]
     Active Substance: AMBRISENTAN
     Indication: PULMONARY HYPERTENSION
     Dosage: 10 MG, QD
     Route: 065
     Dates: start: 20110812

REACTIONS (8)
  - Sluggishness [Unknown]
  - Asthenia [Unknown]
  - Oxygen saturation decreased [Unknown]
  - Weight increased [Unknown]
  - Stent placement [Unknown]
  - Dyspnoea [Unknown]
  - Aortic stent insertion [Unknown]
  - Heart rate increased [Unknown]
